FAERS Safety Report 20597920 (Version 2)
Quarter: 2022Q1

REPORT INFORMATION
  Report Type: Spontaneous
  Country: US (occurrence: US)
  Receive Date: 20220315
  Receipt Date: 20220318
  Transmission Date: 20220423
  Serious: Yes (Other)
  Sender: FDA-Public Use
  Company Number: US-PFIZER INC-202200257770

PATIENT
  Age: 77 Year
  Sex: Male

DRUGS (2)
  1. IBRANCE [Suspect]
     Active Substance: PALBOCICLIB
     Indication: Malignant connective tissue neoplasm
     Dosage: 125 MG
     Dates: start: 20220211
  2. IBRANCE [Suspect]
     Active Substance: PALBOCICLIB
     Indication: Soft tissue sarcoma
     Dosage: UNK
     Dates: start: 20220221

REACTIONS (7)
  - Ascites [Unknown]
  - Abdominal pain lower [Unknown]
  - Renal impairment [Unknown]
  - Off label use [Unknown]
  - Fatigue [Unknown]
  - Tumour pain [Unknown]
  - Neoplasm progression [Unknown]

NARRATIVE: CASE EVENT DATE: 20220101
